FAERS Safety Report 4363889-0 (Version None)
Quarter: 2004Q2

REPORT INFORMATION
  Report Type: 
  Country: None (occurrence: None)
  Receive Date: 20040519
  Receipt Date: 20040510
  Transmission Date: 20050107
  Serious: Yes (Disabling)
  Sender: FDA-Public Use
  Company Number: 2004030928

PATIENT
  Age: 60 Year
  Sex: Male
  Weight: 98 kg

DRUGS (2)
  1. ZARATOR (ATORVASTATIN) [Suspect]
     Indication: HYPERCHOLESTEROLAEMIA
     Dosage: 40 MG (1 IN 1 D), ORAL
     Route: 048
     Dates: start: 20040401, end: 20040415
  2. SALURES-K (BENDROFLUMETHIAZIDE, POTASSIUM CHLORIDE) [Concomitant]

REACTIONS (3)
  - DIZZINESS [None]
  - DRUG ERUPTION [None]
  - SLEEP DISORDER [None]
